FAERS Safety Report 7323098-X (Version None)
Quarter: 2011Q1

REPORT INFORMATION
  Report Type: 
  Country: None (occurrence: None)
  Receive Date: 20110301
  Receipt Date: 20110218
  Transmission Date: 20110831
  Serious: Yes (Other)
  Sender: FDA-Public Use
  Company Number: GB-NOVOPROD-313264

PATIENT
  Sex: Female
  Weight: 83 kg

DRUGS (11)
  1. VICTOZA [Suspect]
     Indication: DIABETES MELLITUS INADEQUATE CONTROL
     Dosage: 0.6 MG, QD
     Route: 058
     Dates: start: 20100309
  2. NOVORAPID [Suspect]
     Indication: DIABETES MELLITUS INADEQUATE CONTROL
     Dosage: 6 IU, TID
     Route: 058
     Dates: start: 20100804
  3. GLUCOPHAGE [Suspect]
     Dosage: 2 G, QD
     Route: 048
  4. VICTOZA [Suspect]
     Dosage: 1.2 IU, QD
     Route: 058
     Dates: end: 20100804
  5. VICTOZA [Suspect]
     Dosage: UNK
  6. LEVEMIR [Suspect]
     Indication: DIABETES MELLITUS INADEQUATE CONTROL
     Dosage: 6 IU, QD
     Route: 058
     Dates: start: 20100804
  7. ROSUVASTATIN [Concomitant]
     Dosage: 10 MG, QD
     Route: 048
     Dates: start: 20070101, end: 20100804
  8. DIAMICRON [Suspect]
     Indication: DIABETES MELLITUS INADEQUATE CONTROL
     Dosage: UNK
  9. GLUCOPHAGE [Suspect]
     Indication: DIABETES MELLITUS INADEQUATE CONTROL
     Dosage: 2 G, QD
     Route: 048
     Dates: end: 20100804
  10. DIAMICRON [Suspect]
     Dosage: 90 MG, QD
     Route: 048
  11. PERINDOPRIL ERBUMINE [Concomitant]
     Dosage: 8 MG, QD
     Route: 048
     Dates: start: 20090316, end: 20100804

REACTIONS (2)
  - DRUG EXPOSURE DURING PREGNANCY [None]
  - ABORTION SPONTANEOUS [None]
